FAERS Safety Report 13127160 (Version 1)
Quarter: 2017Q1

REPORT INFORMATION
  Report Type: Spontaneous
  Country: US (occurrence: US)
  Receive Date: 20170118
  Receipt Date: 20170118
  Transmission Date: 20170428
  Serious: Yes (Death)
  Sender: FDA-Public Use
  Company Number: US-ROCHE-1843036

PATIENT
  Age: 2 Year
  Sex: Female

DRUGS (4)
  1. PREDNISOLONE. [Suspect]
     Active Substance: PREDNISOLONE
     Indication: AUTOIMMUNE DISORDER
     Dosage: DOSE WAS DECREASED TO 1.5 MG/D
     Route: 065
  2. RITUXIMAB [Suspect]
     Active Substance: RITUXIMAB
     Indication: AUTOIMMUNE DISORDER
     Route: 042
  3. IMMUNOGLOBULIN (IVIG) [Suspect]
     Active Substance: HUMAN IMMUNOGLOBULIN G
     Indication: AUTOIMMUNE DISORDER
     Route: 042
  4. ENOXAPARIN [Concomitant]
     Active Substance: ENOXAPARIN
     Route: 065

REACTIONS (1)
  - Device related infection [Fatal]
